FAERS Safety Report 7503103-8 (Version None)
Quarter: 2011Q2

REPORT INFORMATION
  Report Type: 
  Country: None (occurrence: None)
  Receive Date: 20110525
  Receipt Date: 20101022
  Transmission Date: 20111010
  Serious: No
  Sender: FDA-Public Use
  Company Number: US-NOVEN-ALL1-2010-05535

PATIENT
  Sex: Male
  Weight: 90.703 kg

DRUGS (3)
  1. OMEPRAZOLE [Concomitant]
     Dosage: UNK, UNKNOWN
     Route: 048
  2. DAYTRANA [Suspect]
     Dosage: 30 MG, 1X/DAY:QD
     Route: 062
     Dates: start: 20100801, end: 20100801
  3. DAYTRANA [Suspect]
     Dosage: 30 MG, 1X/DAY:QD
     Route: 062
     Dates: start: 20101001

REACTIONS (4)
  - DRUG EFFECT INCREASED [None]
  - EXPIRED DRUG ADMINISTERED [None]
  - OFF LABEL USE [None]
  - PRODUCT ADHESION ISSUE [None]
